FAERS Safety Report 8553325-2 (Version None)
Quarter: 2012Q3

REPORT INFORMATION
  Report Type: 
  Country: None (occurrence: None)
  Receive Date: 20120725
  Receipt Date: 20120725
  Transmission Date: 20120928
  Serious: Yes (Hospitalization)
  Sender: FDA-Public Use
  Company Number: None

PATIENT
  Sex: Female
  Weight: 57.4 kg

DRUGS (1)
  1. ALOSETRON 0.5MG [Suspect]
     Indication: IRRITABLE BOWEL SYNDROME
     Dosage: 0.5MG TWICE DAILY PO
     Route: 048
     Dates: start: 20110919, end: 20120625

REACTIONS (3)
  - SYNCOPE [None]
  - DIARRHOEA HAEMORRHAGIC [None]
  - ABDOMINAL PAIN [None]
